FAERS Safety Report 8521656-8 (Version None)
Quarter: 2012Q3

REPORT INFORMATION
  Report Type: 
  Country: None (occurrence: None)
  Receive Date: 20120719
  Receipt Date: 20120717
  Transmission Date: 20120928
  Serious: Yes (Other)
  Sender: FDA-Public Use
  Company Number: PHEH2012US012138

PATIENT
  Sex: Female

DRUGS (9)
  1. ZANTAC [Concomitant]
  2. DIOVAN HCT [Suspect]
     Dosage: 1 DF(160 MG VAL/ 12.5 MG HCT) BID
  3. METFORMIN HYDROCHLORIDE [Concomitant]
  4. LYRICA [Concomitant]
  5. LEVOXYL [Concomitant]
  6. GABAPENTIN [Concomitant]
  7. POTASSIUM CHLORIDE [Concomitant]
  8. PLAVIX [Concomitant]
  9. ZOCOR [Concomitant]

REACTIONS (4)
  - DIABETES MELLITUS [None]
  - GASTROOESOPHAGEAL REFLUX DISEASE [None]
  - HYPERTENSION [None]
  - NAUSEA [None]
